FAERS Safety Report 5106882-2 (Version None)
Quarter: 2006Q3

REPORT INFORMATION
  Report Type: 
  Country: None (occurrence: None)
  Receive Date: 20060913
  Receipt Date: 20060825
  Transmission Date: 20061208
  Serious: Yes (Other)
  Sender: FDA-Public Use
  Company Number: US200608006064

PATIENT
  Age: 67 Year
  Sex: Female

DRUGS (7)
  1. FORTEO [Suspect]
     Indication: OSTEOPOROSIS
     Dates: start: 20051201
  2. FORTEO [Concomitant]
  3. LIPITOR [Concomitant]
  4. CRESTOR [Concomitant]
  5. ACIPHEX [Concomitant]
  6. LEXAPRO [Concomitant]
  7. VITAMINS [Concomitant]

REACTIONS (3)
  - CAROTID ARTERY OCCLUSION [None]
  - HYPERTENSION [None]
  - PHARMACEUTICAL PRODUCT COMPLAINT [None]
